FAERS Safety Report 12619846 (Version 1)
Quarter: 2016Q3

REPORT INFORMATION
  Report Type: Spontaneous
  Country: US (occurrence: US)
  Receive Date: 20160803
  Receipt Date: 20160803
  Transmission Date: 20161109
  Serious: Yes (Hospitalization)
  Sender: FDA-Public Use
  Company Number: US-DSJP-DSU-2016-126341

PATIENT

DRUGS (5)
  1. SAVAYSA [Suspect]
     Active Substance: EDOXABAN TOSYLATE
     Indication: THROMBOSIS
     Dosage: 30 MG, QD
     Route: 048
     Dates: start: 2016, end: 201606
  2. LIALDA [Concomitant]
     Active Substance: MESALAMINE
     Indication: FUNCTIONAL GASTROINTESTINAL DISORDER
     Dosage: 1200 MG, QD
     Route: 048
  3. SAVAYSA [Suspect]
     Active Substance: EDOXABAN TOSYLATE
     Dosage: 30 MG, BID
     Route: 048
     Dates: start: 201606
  4. SYNTHROID [Concomitant]
     Active Substance: LEVOTHYROXINE SODIUM
     Indication: HYPOTHYROIDISM
     Dosage: 75 MG, QD
     Route: 048
  5. SIMVASTATIN. [Concomitant]
     Active Substance: SIMVASTATIN
     Indication: GASTROOESOPHAGEAL REFLUX DISEASE
     Dosage: 30 MG, QD
     Route: 048

REACTIONS (2)
  - Thrombosis [Recovered/Resolved]
  - Off label use [Not Recovered/Not Resolved]

NARRATIVE: CASE EVENT DATE: 201606
